FAERS Safety Report 6686535-X (Version None)
Quarter: 2010Q2

REPORT INFORMATION
  Report Type: 
  Country: None (occurrence: None)
  Receive Date: 20100414
  Receipt Date: 20100330
  Transmission Date: 20101027
  Serious: Yes (Other)
  Sender: FDA-Public Use
  Company Number: AUR-APL-2010-01047

PATIENT
  Age: 72 Year
  Sex: Male

DRUGS (6)
  1. METOPROLOL [Suspect]
     Dosage: 50MG, BID, ORAL
     Route: 048
  2. RILUTEK [Suspect]
     Indication: AMYOTROPHIC LATERAL SCLEROSIS
     Dosage: 50MG, Q12H, ORAL
     Route: 048
     Dates: start: 20091001
  3. DIGOXIN [Suspect]
     Dosage: 2.5MG-DAILY-ORAL
     Route: 048
  4. CARDIZEM [Suspect]
     Dosage: 180MG-DAILY-ORAL
     Route: 048
  5. COUMADIN [Suspect]
     Dosage: DAILY-ORAL
     Route: 048
  6. ZANAFLEX [Concomitant]

REACTIONS (1)
  - BLOOD PRESSURE DECREASED [None]
